FAERS Safety Report 26024230 (Version 1)
Quarter: 2025Q4

REPORT INFORMATION
  Report Type: Spontaneous
  Country: GB (occurrence: GB)
  Receive Date: 20251111
  Receipt Date: 20251111
  Transmission Date: 20260117
  Serious: Yes (Other)
  Sender: AUROBINDO
  Company Number: GB-MHRA-MED-202510241418477190-GFHNS

PATIENT
  Age: 60 Year
  Sex: Female

DRUGS (2)
  1. PERINDOPRIL [Suspect]
     Active Substance: PERINDOPRIL
     Indication: Hypertension
     Dosage: 2.5 MILLIGRAM, ONCE A DAY
     Route: 065
     Dates: start: 20250929
  2. INDAPAMIDE [Suspect]
     Active Substance: INDAPAMIDE
     Indication: Hypertension
     Dosage: 2.5 MILLIGRAM, ONCE A DAY
     Route: 065
     Dates: start: 20250927

REACTIONS (4)
  - Eye pain [Not Recovered/Not Resolved]
  - Headache [Not Recovered/Not Resolved]
  - Lacrimation increased [Not Recovered/Not Resolved]
  - Ocular discomfort [Not Recovered/Not Resolved]

NARRATIVE: CASE EVENT DATE: 20250927
